FAERS Safety Report 10229913 (Version 1)
Quarter: 2014Q2

REPORT INFORMATION
  Report Type: Report from Study
  Country: PL (occurrence: PL)
  Receive Date: 20140611
  Receipt Date: 20140611
  Transmission Date: 20141212
  Serious: Yes (Other)
  Sender: FDA-Public Use
  Company Number: PHHY2014PL067516

PATIENT
  Age: 80 Year
  Sex: Female

DRUGS (2)
  1. TASIGNA [Suspect]
     Indication: CHRONIC MYELOID LEUKAEMIA
     Dosage: 600 MG, DAILY
     Dates: start: 20131219
  2. TASIGNA [Suspect]
     Indication: OFF LABEL USE
     Dosage: 200 MG, BID
     Dates: start: 201401

REACTIONS (6)
  - Asthenia [Unknown]
  - Pancytopenia [Unknown]
  - Impaired healing [Unknown]
  - Hypertension [Unknown]
  - Dermatitis contact [Unknown]
  - Skin lesion [Unknown]
